FAERS Safety Report 25467293 (Version 1)
Quarter: 2025Q2

REPORT INFORMATION
  Report Type: Spontaneous
  Country: PL (occurrence: PL)
  Receive Date: 20250623
  Receipt Date: 20250623
  Transmission Date: 20250716
  Serious: Yes (Other)
  Sender: AMGEN
  Company Number: PL-AstraZeneca-CH-00887488A

PATIENT
  Age: 52 Year
  Sex: Female

DRUGS (2)
  1. BEVACIZUMAB [Suspect]
     Active Substance: BEVACIZUMAB
     Indication: Product used for unknown indication
     Route: 065
  2. LYNPARZA [Suspect]
     Active Substance: OLAPARIB
     Indication: Ovarian cancer
     Dosage: 300 MILLIGRAM
     Route: 048
     Dates: start: 20240604, end: 20250602

REACTIONS (1)
  - Acute myeloid leukaemia [Recovering/Resolving]

NARRATIVE: CASE EVENT DATE: 20250501
